FAERS Safety Report 8456246-9 (Version None)
Quarter: 2012Q2

REPORT INFORMATION
  Report Type: 
  Country: None (occurrence: None)
  Receive Date: 20120621
  Receipt Date: 20120611
  Transmission Date: 20120825
  Serious: Yes (Hospitalization)
  Sender: FDA-Public Use
  Company Number: US-BAYER-2012-049357

PATIENT
  Age: 22 Year
  Sex: Female
  Weight: 56 kg

DRUGS (4)
  1. MULTI-VITAMINS [Concomitant]
     Indication: HAIR DISORDER
     Route: 048
  2. ANTIBIOTICS [Concomitant]
     Indication: BRONCHITIS
  3. CIPROFLOXACIN HYDROCHLORIDE [Concomitant]
     Dosage: 500 MG, BID
     Route: 048
  4. YAZ [Suspect]
     Route: 048

REACTIONS (2)
  - TRANSIENT ISCHAEMIC ATTACK [None]
  - ARNOLD-CHIARI MALFORMATION [None]
